FAERS Safety Report 25983577 (Version 1)
Quarter: 2025Q4

REPORT INFORMATION
  Report Type: Spontaneous
  Country: BR (occurrence: BR)
  Receive Date: 20251031
  Receipt Date: 20251031
  Transmission Date: 20260117
  Serious: Yes (Other)
  Sender: DAIICHI
  Company Number: BR-DSJP-DS-2025-172804-BR

PATIENT
  Age: 53 Year
  Sex: Female

DRUGS (8)
  1. ENHERTU [Suspect]
     Active Substance: FAM-TRASTUZUMAB DERUXTECAN-NXKI
     Indication: Invasive breast carcinoma
     Dosage: 5.4 MG/KG, ONCE EVERY 3 WK (Q 21 DAYS)
     Route: 042
     Dates: start: 20250107, end: 20250107
  2. ENHERTU [Suspect]
     Active Substance: FAM-TRASTUZUMAB DERUXTECAN-NXKI
     Dosage: 5.4 MG/KG, ONCE EVERY 3 WK (Q 21 DAYS)
     Route: 042
     Dates: start: 20250128, end: 20250128
  3. ENHERTU [Suspect]
     Active Substance: FAM-TRASTUZUMAB DERUXTECAN-NXKI
     Dosage: 5.4 MG/KG, ONCE EVERY 3 WK (Q 21 DAYS)
     Route: 042
     Dates: start: 20250220, end: 20250220
  4. ENHERTU [Suspect]
     Active Substance: FAM-TRASTUZUMAB DERUXTECAN-NXKI
     Dosage: 4.4 MG/KG, ONCE EVERY 3 WK (Q 21 DAYS)
     Route: 042
     Dates: start: 20250313, end: 20250313
  5. ENHERTU [Suspect]
     Active Substance: FAM-TRASTUZUMAB DERUXTECAN-NXKI
     Dosage: 4.4 MG/KG, ONCE EVERY 3 WK (Q 21 DAYS)
     Route: 042
     Dates: start: 20250403, end: 20250403
  6. ENHERTU [Suspect]
     Active Substance: FAM-TRASTUZUMAB DERUXTECAN-NXKI
     Dosage: 4.4 MG/KG, ONCE EVERY 3 WK (Q 21 DAYS)
     Route: 042
     Dates: start: 20250424, end: 20250515
  7. ENHERTU [Suspect]
     Active Substance: FAM-TRASTUZUMAB DERUXTECAN-NXKI
     Dosage: 4.4 MG/KG, ONCE EVERY 3 WK (Q 21 DAYS)
     Route: 042
     Dates: start: 20250515, end: 20250515
  8. ENHERTU [Suspect]
     Active Substance: FAM-TRASTUZUMAB DERUXTECAN-NXKI
     Dosage: 4.4 MG/KG, 4.4 MG/KG, ONCE EVERY 3 WK (Q 21 DAYS)
     Route: 042
     Dates: start: 20250807

REACTIONS (9)
  - Metastases to lung [Unknown]
  - Metastases to liver [Unknown]
  - Metastases to lymph nodes [Unknown]
  - Interstitial lung disease [Unknown]
  - Therapy partial responder [Unknown]
  - Tooth abscess [Unknown]
  - Dyspnoea [Unknown]
  - Cough [Unknown]
  - Nausea [Unknown]

NARRATIVE: CASE EVENT DATE: 20250101
